FAERS Safety Report 8463253-9 (Version None)
Quarter: 2012Q2

REPORT INFORMATION
  Report Type: 
  Country: None (occurrence: None)
  Receive Date: 20120625
  Receipt Date: 20120619
  Transmission Date: 20120825
  Serious: Yes (Death, Life-Threatening, Hospitalization, Other)
  Sender: FDA-Public Use
  Company Number: DE-BRISTOL-MYERS SQUIBB COMPANY-16197402

PATIENT
  Age: 68 Year
  Sex: Female
  Weight: 100 kg

DRUGS (6)
  1. TRETINOIN [Suspect]
     Indication: ACUTE MYELOID LEUKAEMIA
     Dosage: 19SEP (DAY 6)-21SEP11 (DAY 8),90MG 22SEP (DAY 9)-01OCT11 (DAY 18),30MG,ATRA
     Dates: start: 20110919
  2. PEGFILGRASTIM [Suspect]
     Indication: ACUTE MYELOID LEUKAEMIA
     Dosage: INTERRUPTED ON 23SEP11,CYCLE INDUCTION 2
     Dates: start: 20110923
  3. GEMTUZUMAB OZOGAMICIN [Suspect]
     Indication: ACUTE MYELOID LEUKAEMIA
     Dosage: 6.15MG DAILY ONCE PER TREATMENT CYCLE (ON DAY 1) FROM 04-14 SEP2011;INTERRUPTED ON 14SEP2011.
     Dates: start: 20110904
  4. CYTARABINE [Suspect]
     Indication: ACUTE MYELOID LEUKAEMIA
     Dosage: 205 MG DAILY FROM DAY 1 (14-SEP-2011) TO DAY 5 (18-SEP-2011); INTERRUPTED ON 18SEP2011.
     Dates: start: 20110914
  5. IDARUBICIN HCL [Suspect]
     Indication: ACUTE MYELOID LEUKAEMIA
     Dosage: 24.6 MG DAILY ON DAY 1 (14-SEP-2011) AND ON DAY 3 (16-SEP-2011).
     Dates: start: 20110914
  6. ETOPOSIDE [Suspect]
     Indication: ACUTE MYELOID LEUKAEMIA
     Dosage: 205 MG DAILY ON DAY 1 (14-SEP-2011) AND ON DAY 3 (16-SEP-2011),INTERRUPTED ON 16SEP2011
     Dates: start: 20110914

REACTIONS (4)
  - VENOOCCLUSIVE LIVER DISEASE [None]
  - PSEUDOMONAL SEPSIS [None]
  - RENAL FAILURE [None]
  - MULTI-ORGAN FAILURE [None]
